FAERS Safety Report 14790606 (Version 3)
Quarter: 2019Q2

REPORT INFORMATION
  Report Type: Spontaneous
  Country: US (occurrence: US)
  Receive Date: 20180423
  Receipt Date: 20190603
  Transmission Date: 20190711
  Serious: Yes (Hospitalization, Other)
  Sender: FDA-Public Use
  Company Number: US-SA-2018SA111164

PATIENT
  Age: 35 Year
  Sex: Female

DRUGS (8)
  1. LAMIVUDINE. [Concomitant]
     Active Substance: LAMIVUDINE
     Dosage: UNK
  2. SEVELAMER HYDROCHLORIDE. [Suspect]
     Active Substance: SEVELAMER HYDROCHLORIDE
     Indication: BLOOD PHOSPHORUS INCREASED
     Dosage: UNK UNK,1600 MD;TID
     Route: 065
  3. CALCITRIOL. [Concomitant]
     Active Substance: CALCITRIOL
  4. ABACAVIR. [Concomitant]
     Active Substance: ABACAVIR
  5. PHENYTOIN. [Concomitant]
     Active Substance: PHENYTOIN
     Indication: SEIZURE
  6. CHOLECALCIFEROL [Concomitant]
     Active Substance: CHOLECALCIFEROL
  7. DARBEPOETIN ALFA [Concomitant]
     Active Substance: DARBEPOETIN ALFA
  8. CLOPIDOGREL [Concomitant]
     Active Substance: CLOPIDOGREL BISULFATE

REACTIONS (4)
  - Crystal deposit intestine [Unknown]
  - Abdominal pain lower [Unknown]
  - Colitis ischaemic [Unknown]
  - Haematochezia [Unknown]
